FAERS Safety Report 15326780 (Version 1)
Quarter: 2018Q3

REPORT INFORMATION
  Report Type: Spontaneous
  Country: CN (occurrence: CN)
  Receive Date: 20180828
  Receipt Date: 20180828
  Transmission Date: 20181010
  Serious: Yes (Other)
  Sender: FDA-Public Use
  Company Number: CN-009507513-1808CHN010927

PATIENT
  Age: 30 Year
  Sex: Male

DRUGS (1)
  1. TEMOZOLOMIDE. [Suspect]
     Active Substance: TEMOZOLOMIDE
     Indication: ASTROCYTOMA MALIGNANT
     Route: 048

REACTIONS (4)
  - Drug ineffective [Unknown]
  - Astrocytoma malignant [Unknown]
  - Glioblastoma [Unknown]
  - Recurrent cancer [Unknown]
